FAERS Safety Report 15256951 (Version 1)
Quarter: 2018Q3

REPORT INFORMATION
  Report Type: Spontaneous
  Country: IE (occurrence: IE)
  Receive Date: 20180808
  Receipt Date: 20180808
  Transmission Date: 20181010
  Serious: Yes (Hospitalization)
  Sender: FDA-Public Use
  Company Number: IE-MYLANLABS-2018M1059453

PATIENT
  Age: 68 Year
  Sex: Female

DRUGS (1)
  1. LITHIUM. [Suspect]
     Active Substance: LITHIUM
     Indication: BIPOLAR DISORDER
     Dosage: FOR 30 YEARS
     Route: 065

REACTIONS (1)
  - Withdrawal catatonia [Recovered/Resolved]

NARRATIVE: CASE EVENT DATE: 2016
